FAERS Safety Report 8662326 (Version 2)
Quarter: 2013Q1

REPORT INFORMATION
  Report Type: Spontaneous
  Country: US (occurrence: None)
  Receive Date: 20120627
  Receipt Date: 20121129
  Transmission Date: 20140127
  Serious: Yes (Hospitalization, Other)
  Sender: FDA-Public Use
  Company Number: AXC-2012-000273

PATIENT
  Age: 25 Year
  Sex: Male

DRUGS (1)
  1. MESALAMINE [Suspect]
     Dosage: 1.5 G, QD

REACTIONS (4)
  - TUBULOINTERSTITIAL NEPHRITIS [None]
  - RENAL FAILURE [None]
  - FATIGUE [None]
  - NAUSEA [None]
